FAERS Safety Report 17647497 (Version 2)
Quarter: 2020Q2

REPORT INFORMATION
  Report Type: Report from Study
  Country: US (occurrence: US)
  Receive Date: 20200409
  Receipt Date: 20200513
  Transmission Date: 20200713
  Serious: Yes (Other)
  Sender: FDA-Public Use
  Company Number: US-ROCHE-2576856

PATIENT

DRUGS (1)
  1. CAPECITABINE. [Suspect]
     Active Substance: CAPECITABINE
     Indication: TRIPLE NEGATIVE BREAST CANCER
     Dosage: DOSE RANGED BETWEEN 1000-3000 MG DAILY
     Route: 065

REACTIONS (3)
  - Skin hyperpigmentation [Unknown]
  - Radiation skin injury [Unknown]
  - Skin exfoliation [Unknown]
